FAERS Safety Report 4265490-6 (Version None)
Quarter: 2004Q1

REPORT INFORMATION
  Report Type: 
  Country: None (occurrence: None)
  Receive Date: 20040106
  Receipt Date: 20031223
  Transmission Date: 20041129
  Serious: Yes (Other)
  Sender: FDA-Public Use
  Company Number: 2003114195

PATIENT
  Sex: Male

DRUGS (16)
  1. EPAMIN (PHENYTOIN SODIUM) [Suspect]
     Indication: CONVULSION
     Dosage: ORAL
     Route: 048
     Dates: start: 20031013
  2. DILANTIN KAPSEAL [Suspect]
     Indication: CONVULSION
     Dosage: ORAL
     Route: 048
  3. NITROGLYCERIN [Concomitant]
  4. CLONAZEPAM [Concomitant]
  5. FUROSEMIDE [Concomitant]
  6. VALSARTAN (VALSARTAN) [Concomitant]
  7. INSULIN [Concomitant]
  8. ISOPHANE INSULIN [Concomitant]
  9. IBUPROFEN [Concomitant]
  10. SINEMET [Concomitant]
  11. CARVEDILOL [Concomitant]
  12. PRAVASTATIN SODIUM [Concomitant]
  13. VENLAFAXINE HCL [Concomitant]
  14. B-50 (VITAMIN B NOS) [Concomitant]
  15. SALBUTAMOL (SALBUTAMOL) [Concomitant]
  16. ACETYLSALICYLIC ACID SRT [Concomitant]

REACTIONS (6)
  - ATAXIA [None]
  - CONVULSION [None]
  - DRUG LEVEL BELOW THERAPEUTIC [None]
  - DRUG TOXICITY [None]
  - FALL [None]
  - MEDICATION ERROR [None]
